FAERS Safety Report 6837878-8 (Version None)
Quarter: 2010Q3

REPORT INFORMATION
  Report Type: 
  Country: None (occurrence: None)
  Receive Date: 20100709
  Receipt Date: 20100622
  Transmission Date: 20110219
  Serious: Yes (Hospitalization)
  Sender: FDA-Public Use
  Company Number: CV20100327

PATIENT
  Age: 73 Year
  Sex: Female

DRUGS (12)
  1. PROPOFOL [Suspect]
     Indication: INDUCTION OF ANAESTHESIA
     Dosage: INTRAVENOUS
     Route: 042
     Dates: start: 20100420
  2. ATRACURIUM HOSPIRA (ATRACURIUM) (ATRACURIUM) [Concomitant]
  3. ULTIVA (REMIFENTANIL HYDROCHLORIDE) (REMIFENTANIL HYDROCHLORIDE) [Concomitant]
  4. NORMACOL LAVENT ADULTES (BACTRIM) (BACTRIM) [Concomitant]
  5. BETADINE DERMIQUE (POVIDONE-IODINE) (POVIDONE-IODINE) [Concomitant]
  6. AUGMENTIN (AUGMENTIN) (AUGMENTIN) [Concomitant]
  7. NEURONTINE (GABAPENTIN) (GABAPENTIN) [Concomitant]
  8. KETAMINE (KETAMINE) (KETAMINE) [Concomitant]
  9. NAROPEINE (ROPIVACAINE HYDROCHLORIDE) (ROPIVACAINE HYDROCHLORIDE) [Concomitant]
  10. LOVENOX (HEPARIN-FRACTION, SODIUM SALT) (HEPARIN-FRACTION, SODIUM SALT [Concomitant]
  11. CALCIUM CHLORIDE RENAUDIN (CALCIUM CHLORIDE DIHYDRATE) (CALCIUM CHLORI [Concomitant]
  12. GENTAMICIN [Concomitant]

REACTIONS (3)
  - LYMPHOPENIA [None]
  - NEPHROLITHIASIS [None]
  - RENAL FAILURE ACUTE [None]
